FAERS Safety Report 9393640 (Version 2)
Quarter: 2013Q3

REPORT INFORMATION
  Report Type: Spontaneous
  Country: JP (occurrence: JP)
  Receive Date: 20130710
  Receipt Date: 20130723
  Transmission Date: 20140515
  Serious: Yes (Hospitalization)
  Sender: FDA-Public Use
  Company Number: JP-GLAXOSMITHKLINE-B0900954A

PATIENT
  Age: 80 Year
  Sex: Female
  Weight: 70 kg

DRUGS (4)
  1. VALTREX [Suspect]
     Indication: HERPES ZOSTER
     Dosage: 1000MG THREE TIMES PER DAY
     Route: 048
     Dates: start: 20130404, end: 20130409
  2. EDIROL [Suspect]
     Indication: PRODUCT USED FOR UNKNOWN INDICATION
     Dosage: .5MCG PER DAY
     Route: 048
     Dates: start: 20130208, end: 20130409
  3. LOXONIN [Suspect]
     Indication: PRODUCT USED FOR UNKNOWN INDICATION
     Dosage: 60MG TWICE PER DAY
     Route: 048
     Dates: start: 20130208, end: 20130409
  4. IRSOGLADINE MALEATE [Concomitant]
     Dosage: 2MG TWICE PER DAY
     Route: 048
     Dates: start: 20130208, end: 20130409

REACTIONS (4)
  - Renal failure acute [Recovered/Resolved]
  - Aphagia [Unknown]
  - Nausea [Unknown]
  - Headache [Unknown]
